FAERS Safety Report 5622424-7 (Version None)
Quarter: 2008Q1

REPORT INFORMATION
  Report Type: 
  Country: None (occurrence: None)
  Receive Date: 20080114
  Receipt Date: 20070815
  Transmission Date: 20080703
  Serious: Yes (Hospitalization)
  Sender: FDA-Public Use
  Company Number: A03200705132

PATIENT
  Age: 83 Year
  Sex: Female
  Weight: 84.369 kg

DRUGS (8)
  1. PLAVIX [Suspect]
     Indication: PROPHYLAXIS
     Dosage: 75 MG QD - ORAL
     Route: 048
  2. IODINE - UNKNOWN - UNIT DOSE : UNKNOWN [Suspect]
     Indication: ANGIOGRAM
     Dates: start: 20070101, end: 20070101
  3. ACETYLSALICYLIC ACID SRT [Concomitant]
  4. TEMAZEPAM [Concomitant]
  5. METOPROLOL TARTRATE [Concomitant]
  6. ATORVASTATIN CALCIUM [Concomitant]
  7. PANTOPRAZOLE SODIUM [Concomitant]
  8. ZOLPIDEM TARTRATE [Concomitant]

REACTIONS (5)
  - EPISTAXIS [None]
  - FACE OEDEMA [None]
  - HYPERSENSITIVITY [None]
  - PRURITUS [None]
  - RHINORRHOEA [None]
